FAERS Safety Report 9908725 (Version 1)
Quarter: 2014Q1

REPORT INFORMATION
  Report Type: Spontaneous
  Country: US (occurrence: US)
  Receive Date: 20140219
  Receipt Date: 20140219
  Transmission Date: 20141002
  Serious: No
  Sender: FDA-Public Use
  Company Number: US-PFIZER INC-2014046497

PATIENT
  Age: 45 Year
  Sex: Female
  Weight: 137.42 kg

DRUGS (3)
  1. SERTRALINE HCL [Suspect]
     Indication: DEPRESSION
     Dosage: 300 MG, 1X/DAY
     Route: 048
     Dates: start: 2012, end: 2012
  2. XANAX [Concomitant]
     Dosage: UNK
  3. SYNTHROID [Concomitant]
     Dosage: UNK

REACTIONS (2)
  - Malaise [Unknown]
  - Feeling abnormal [Unknown]
